FAERS Safety Report 5094231-8 (Version None)
Quarter: 2006Q3

REPORT INFORMATION
  Report Type: 
  Country: None (occurrence: None)
  Receive Date: 20060830
  Receipt Date: 20060830
  Transmission Date: 20061208
  Serious: Yes (Disabling, Other)
  Sender: FDA-Public Use
  Company Number: None

PATIENT
  Age: 55 Year
  Sex: Female
  Weight: 67.1324 kg

DRUGS (1)
  1. PHENERGAN [Suspect]
     Indication: NAUSEA
     Dosage: ONE ONCE IV
     Route: 042
     Dates: start: 20060825, end: 20060825

REACTIONS (9)
  - CONTUSION [None]
  - INFECTION [None]
  - INFUSION SITE PAIN [None]
  - OEDEMA PERIPHERAL [None]
  - PARAESTHESIA [None]
  - SKIN DISCOLOURATION [None]
  - THROMBOPHLEBITIS SUPERFICIAL [None]
  - VEIN DISORDER [None]
  - WRONG TECHNIQUE IN DRUG USAGE PROCESS [None]
